FAERS Safety Report 7387322-X (Version None)
Quarter: 2011Q1

REPORT INFORMATION
  Report Type: 
  Country: None (occurrence: None)
  Receive Date: 20110331
  Receipt Date: 20110322
  Transmission Date: 20110831
  Serious: Yes (Hospitalization)
  Sender: FDA-Public Use
  Company Number: AT-BRISTOL-MYERS SQUIBB COMPANY-15643331

PATIENT
  Age: 66 Year
  Sex: Male
  Weight: 60 kg

DRUGS (7)
  1. VITAMIN K TAB [Suspect]
     Dosage: SEVERAL TIMES
     Route: 003
  2. AERIUS [Concomitant]
     Indication: PRURITUS
     Route: 048
     Dates: start: 20101223
  3. ERBITUX [Suspect]
     Indication: NEOPLASM MALIGNANT
  4. EUTHYROX [Concomitant]
     Indication: THYROID DISORDER
     Route: 048
  5. SUCRALFATE [Concomitant]
     Dosage: 3-4DAILY
     Route: 048
     Dates: start: 20110303
  6. POLYETHYLENE GLYCOL [Concomitant]
     Dosage: MOUTH WASH
     Dates: start: 20110303
  7. DAKTARIN [Concomitant]
     Indication: ANTIFUNGAL PROPHYLAXIS
     Dosage: DAKTARIN GEL 2PERCENT,1DF=2-3ML,2-3DAILY
     Route: 048
     Dates: start: 20110303

REACTIONS (1)
  - MONOPLEGIA [None]
